FAERS Safety Report 8075455-4 (Version None)
Quarter: 2012Q1

REPORT INFORMATION
  Report Type: 
  Country: None (occurrence: None)
  Receive Date: 20120127
  Receipt Date: 20120116
  Transmission Date: 20120608
  Serious: Yes (Other)
  Sender: FDA-Public Use
  Company Number: DE-UCBSA-024704

PATIENT
  Age: 56 Year
  Sex: Female

DRUGS (3)
  1. KEPPRA [Suspect]
     Indication: CONVULSION
  2. KEPPRA [Suspect]
  3. ANTIEPILEPTICS [Concomitant]

REACTIONS (3)
  - WEIGHT DECREASED [None]
  - BRAIN OEDEMA [None]
  - OFF LABEL USE [None]
